FAERS Safety Report 13111457 (Version 5)
Quarter: 2017Q1

REPORT INFORMATION
  Report Type: Report from Study
  Country: BR (occurrence: BR)
  Receive Date: 20170112
  Receipt Date: 20170317
  Transmission Date: 20170428
  Serious: Yes (Hospitalization, Other)
  Sender: FDA-Public Use
  Company Number: BR-ALEXION PHARMACEUTICALS INC.-A201700105

PATIENT
  Sex: Female

DRUGS (4)
  1. HEMAX                              /00928302/ [Concomitant]
     Indication: PRODUCT USED FOR UNKNOWN INDICATION
     Dosage: 4000 IU, TIW
     Route: 065
  2. HEMAX                              /00928302/ [Concomitant]
     Dosage: 4000 IU, QIW
     Route: 065
     Dates: start: 20170308
  3. SOLIRIS [Suspect]
     Active Substance: ECULIZUMAB
     Dosage: 900 MG, UNK
     Route: 042
     Dates: start: 20151104
  4. SOLIRIS [Suspect]
     Active Substance: ECULIZUMAB
     Indication: PAROXYSMAL NOCTURNAL HAEMOGLOBINURIA
     Dosage: 600 MG, UNK
     Route: 042
     Dates: start: 20151007, end: 20151028

REACTIONS (18)
  - Acute respiratory failure [Unknown]
  - Platelet count decreased [Unknown]
  - Pulmonary embolism [Unknown]
  - Red blood cell count decreased [Unknown]
  - Immunodeficiency [Not Recovered/Not Resolved]
  - Haematocrit decreased [Unknown]
  - Haemoglobin decreased [Unknown]
  - Pain in extremity [Unknown]
  - Fatigue [Unknown]
  - Myalgia [Unknown]
  - Arthralgia [Unknown]
  - Transfusion reaction [Unknown]
  - Jaundice [Unknown]
  - Hyperhidrosis [Unknown]
  - Inappropriate schedule of drug administration [Unknown]
  - Condition aggravated [Unknown]
  - Blood lactate dehydrogenase increased [Unknown]
  - Dyspnoea [Unknown]

NARRATIVE: CASE EVENT DATE: 20170103
